FAERS Safety Report 11469747 (Version 1)
Quarter: 2015Q3

REPORT INFORMATION
  Report Type: Spontaneous
  Country: US (occurrence: US)
  Receive Date: 20150908
  Receipt Date: 20150908
  Transmission Date: 20151125
  Serious: No
  Sender: FDA-Public Use
  Company Number: US-JNJFOC-20150801626

PATIENT
  Age: 69 Year
  Sex: Male
  Weight: 79.38 kg

DRUGS (11)
  1. ZYRTEC [Suspect]
     Active Substance: CETIRIZINE HYDROCHLORIDE
     Route: 048
  2. SYMBICORT [Concomitant]
     Active Substance: BUDESONIDE\FORMOTEROL FUMARATE DIHYDRATE
     Indication: EMPHYSEMA
     Dosage: 2 PUFFS, TWICE A DAY FOR MORE THAN 3 YEARS
     Route: 065
  3. ASPIRIN. [Concomitant]
     Active Substance: ASPIRIN
     Indication: CARDIAC DISORDER
     Dosage: 325 MG, 1/3 TO 1/2 TAB ONCE A DAY, FOR YEARS SINCE 2005
     Route: 065
  4. MULTIVITAMINS [Concomitant]
     Active Substance: VITAMINS
     Indication: VITAMIN SUPPLEMENTATION
     Dosage: 1 TABLET, ONCE A DAY, FOR MORE THAN 10 YEARS
     Route: 065
  5. FISH OIL CONCENTRATE [Concomitant]
     Indication: NUTRITIONAL SUPPLEMENTATION
     Dosage: 600 MG, 1 TAB ONCE A DAY FOR MORE THAN 10 YEARS
     Route: 065
  6. ZYRTEC [Suspect]
     Active Substance: CETIRIZINE HYDROCHLORIDE
     Indication: RASH
     Dosage: ONE TABLET, ONCE A DAY
     Route: 048
     Dates: start: 20150729, end: 20150801
  7. FENOFIBRATE. [Concomitant]
     Active Substance: FENOFIBRATE
     Indication: CARDIAC DISORDER
     Dosage: 160 MG, 1 TAB ONCE A DAY, FOR YEARS SINCE 2005
     Route: 065
     Dates: start: 2005
  8. METFORMIN [Concomitant]
     Active Substance: METFORMIN HYDROCHLORIDE
     Indication: DIABETES MELLITUS
     Dosage: 500 MG, 1 TAB ONCE A DAY, FOR 6-7 WEEKS
     Route: 065
  9. CRESTOR [Concomitant]
     Active Substance: ROSUVASTATIN CALCIUM
     Indication: BLOOD CHOLESTEROL ABNORMAL
     Dosage: 40 MG, ONE TAB ONCE A DAY, FOR YEARS SINCE 2005
     Route: 065
     Dates: start: 2005
  10. METOPROLOL [Concomitant]
     Active Substance: METOPROLOL
     Indication: CARDIAC DISORDER
     Dosage: 25 MG, 1 TAB TWICE A DAY, FOR YEARS SINCE 2005
     Route: 065
  11. LISINOPRIL. [Concomitant]
     Active Substance: LISINOPRIL
     Indication: CARDIAC DISORDER
     Dosage: 5MG, 1 TAB ONCE A DAY, FOR YEARS SINCE 2005
     Route: 065
     Dates: start: 2005

REACTIONS (3)
  - Product packaging issue [Unknown]
  - Tooth fracture [Not Recovered/Not Resolved]
  - Drug ineffective [Unknown]

NARRATIVE: CASE EVENT DATE: 20150729
